FAERS Safety Report 6828961-1 (Version None)
Quarter: 2010Q3

REPORT INFORMATION
  Report Type: 
  Country: None (occurrence: None)
  Receive Date: 20100709
  Receipt Date: 20070226
  Transmission Date: 20110219
  Serious: Yes (Other)
  Sender: FDA-Public Use
  Company Number: US-PFIZER INC-2007014797

PATIENT
  Sex: Female

DRUGS (2)
  1. CHANTIX [Suspect]
  2. ATENOLOL [Concomitant]

REACTIONS (4)
  - HYPERTENSION [None]
  - SPEECH DISORDER [None]
  - TONGUE DISORDER [None]
  - VIITH NERVE PARALYSIS [None]
